FAERS Safety Report 9759790 (Version 2)
Quarter: 2013Q4

REPORT INFORMATION
  Report Type: Spontaneous
  Country: US (occurrence: US)
  Receive Date: 20131216
  Receipt Date: 20131216
  Transmission Date: 20140711
  Serious: No
  Sender: FDA-Public Use
  Company Number: US-GILEAD-2010-0028665

PATIENT
  Sex: Female
  Weight: 72.57 kg

DRUGS (13)
  1. LETAIRIS [Suspect]
     Indication: PULMONARY ARTERIAL HYPERTENSION
     Route: 048
     Dates: start: 20100331
  2. SYNTHROID [Concomitant]
  3. VICODIN ES [Concomitant]
  4. CLARITIN-D 24 HOUR [Concomitant]
  5. HYDROXYCHLOROQUINE [Concomitant]
  6. PRIMIDONE [Concomitant]
  7. OMEGA-3 [Concomitant]
  8. ASPIRIN [Concomitant]
  9. ACETAMINOPHEN [Concomitant]
  10. MULTIVITAMIN [Concomitant]
  11. CALCIUM+D [Concomitant]
  12. OMEPRAZOLE [Concomitant]
  13. REVATIO [Concomitant]

REACTIONS (2)
  - Insomnia [Recovered/Resolved]
  - Pain [Recovered/Resolved]
